FAERS Safety Report 9257177 (Version 1)
Quarter: 2013Q1

REPORT INFORMATION
  Report Type: Spontaneous
  Country: US (occurrence: None)
  Receive Date: 20121212
  Receipt Date: 20121212
  Transmission Date: 20140127
  Serious: No
  Sender: FDA-Public Use
  Company Number: 1210USA000424

PATIENT
  Age: 59 Year
  Sex: Female

DRUGS (6)
  1. VICTRELIS [Suspect]
     Indication: HEPATITIS C
     Dosage: 4 DF, Q8H, ORAL
     Route: 048
  2. RIBASPHERE (RIBAVIRIN) [Concomitant]
  3. PEGASYS (PEGINTERFERON ALFA-2A) [Concomitant]
  4. AMBIEN (ZOLPIDEM TARTRATE) [Concomitant]
  5. VALIUM (DIAZEPAM) [Concomitant]
  6. CLIMARA PRO (ESTRADIOL, LEVONORGESTREL) [Concomitant]

REACTIONS (5)
  - Psoriasis [None]
  - Sleep disorder [None]
  - Fatigue [None]
  - Pruritus [None]
  - Depression [None]
